FAERS Safety Report 6448134-4 (Version None)
Quarter: 2009Q4

REPORT INFORMATION
  Report Type: 
  Country: None (occurrence: None)
  Receive Date: 20091120
  Receipt Date: 20091109
  Transmission Date: 20100525
  Serious: Yes (Death)
  Sender: FDA-Public Use
  Company Number: AT-TYCO HEALTHCARE/MALLINCKRODT-T200902060

PATIENT
  Age: 76 Year
  Sex: Male

DRUGS (1)
  1. ANAFRANIL CAP [Suspect]

REACTIONS (2)
  - OVERDOSE [None]
  - POISONING DELIBERATE [None]
